FAERS Safety Report 21176846 (Version 1)
Quarter: 2022Q3

REPORT INFORMATION
  Report Type: Report from Study
  Country: DE (occurrence: DE)
  Receive Date: 20220805
  Receipt Date: 20220805
  Transmission Date: 20221027
  Serious: Yes (Hospitalization)
  Sender: FDA-Public Use
  Company Number: DE-ABBVIE-22K-062-4494014-00

PATIENT
  Age: 58 Year
  Sex: Female

DRUGS (8)
  1. HUMIRA [Suspect]
     Active Substance: ADALIMUMAB
     Indication: Rheumatoid arthritis
     Route: 058
     Dates: start: 201111, end: 201504
  2. LEFLUNOMIDE [Concomitant]
     Active Substance: LEFLUNOMIDE
     Indication: Rheumatoid arthritis
  3. MABTHERA [Concomitant]
     Active Substance: RITUXIMAB
     Indication: Rheumatoid arthritis
     Dates: start: 201504, end: 201504
  4. MABTHERA [Concomitant]
     Active Substance: RITUXIMAB
     Dates: start: 201511, end: 201511
  5. MABTHERA [Concomitant]
     Active Substance: RITUXIMAB
     Dates: start: 201609, end: 201609
  6. TRUXIMA [Concomitant]
     Active Substance: RITUXIMAB-ABBS
     Indication: Rheumatoid arthritis
     Route: 065
     Dates: start: 201801
  7. TRUXIMA [Concomitant]
     Active Substance: RITUXIMAB-ABBS
     Route: 065
     Dates: start: 201901
  8. RITUXIMAB [Concomitant]
     Active Substance: RITUXIMAB
     Indication: Rheumatoid arthritis
     Route: 065
     Dates: start: 202009

REACTIONS (1)
  - Osteoarthritis [Unknown]

NARRATIVE: CASE EVENT DATE: 20210826
